FAERS Safety Report 19928225 (Version 1)
Quarter: 2021Q4

REPORT INFORMATION
  Report Type: Spontaneous
  Country: US (occurrence: US)
  Receive Date: 20211007
  Receipt Date: 20211007
  Transmission Date: 20220303
  Serious: No
  Sender: FDA-Public Use
  Company Number: US-BAYER-2021A225597

PATIENT
  Age: 85 Year
  Sex: Male

DRUGS (1)
  1. MIRALAX [Suspect]
     Active Substance: POLYETHYLENE GLYCOL 3350
     Dosage: FULL CAP (PINK) DOSE
     Route: 048
     Dates: start: 202109

REACTIONS (1)
  - Pruritus [Not Recovered/Not Resolved]
